FAERS Safety Report 14682758 (Version 1)
Quarter: 2018Q1

REPORT INFORMATION
  Report Type: Spontaneous
  Country: FR (occurrence: FR)
  Receive Date: 20180327
  Receipt Date: 20180327
  Transmission Date: 20180509
  Serious: Yes (Other)
  Sender: FDA-Public Use
  Company Number: FR-CONCORDIA PHARMACEUTICALS INC.-GSH201803-001034

PATIENT
  Age: 80 Year
  Sex: Male

DRUGS (2)
  1. ALFUZOSIN EXTENDED-RELEASE TABLET [Suspect]
     Active Substance: ALFUZOSIN
     Indication: PRODUCT USED FOR UNKNOWN INDICATION
     Route: 048
     Dates: start: 20171212
  2. VESICARE [Concomitant]
     Active Substance: SOLIFENACIN SUCCINATE

REACTIONS (3)
  - Pollakiuria [Unknown]
  - Discomfort [Unknown]
  - Cerebrovascular accident [Unknown]
